FAERS Safety Report 19129826 (Version 2)
Quarter: 2021Q2

REPORT INFORMATION
  Report Type: Spontaneous
  Country: PT (occurrence: PT)
  Receive Date: 20210414
  Receipt Date: 20210624
  Transmission Date: 20210717
  Serious: Yes (Life-Threatening, Hospitalization, Other)
  Sender: FDA-Public Use
  Company Number: PT-CELLTRION INC.-2021PT004734

PATIENT

DRUGS (12)
  1. VINCRISTINE [Suspect]
     Active Substance: VINCRISTINE
     Dosage: 1.4 MG/M2
     Route: 065
  2. METHOTREXATE. [Suspect]
     Active Substance: METHOTREXATE
     Dosage: 7.5 G/M2 5 CYCLES ALTERNATE WITH MTX
     Route: 037
  3. PROCARBAZINE [Suspect]
     Active Substance: PROCARBAZINE
     Indication: CENTRAL NERVOUS SYSTEM LYMPHOMA
     Dosage: 100 MG/M2/DAY (R?MVP 5 CYCLES)
     Dates: start: 201503
  4. METHOTREXATE. [Suspect]
     Active Substance: METHOTREXATE
     Dosage: 3.5 G/M2 5 CYCLES ALTERNATE WEEKLY WITH INTRA?CSF MTX
  5. RITUXIMAB (UNKNOWN) [Suspect]
     Active Substance: RITUXIMAB
     Dosage: 1 MG/0.1 ML (4 WEEKLY CYCLES OF INTRAOCULAR)
  6. RITUXIMAB (UNKNOWN) [Suspect]
     Active Substance: RITUXIMAB
     Indication: CENTRAL NERVOUS SYSTEM LYMPHOMA
     Dosage: 500 MG/M2 (R?MVP5 CYCLES)
     Dates: start: 20150315
  7. RITUXIMAB (UNKNOWN) [Suspect]
     Active Substance: RITUXIMAB
     Dosage: 500 MG/M2, 5 CYCLES
  8. RITUXIMAB (UNKNOWN) [Suspect]
     Active Substance: RITUXIMAB
     Dosage: 500 MG/M2 TO COMPLETE 12 CYCLES
  9. RITUXIMAB (UNKNOWN) [Suspect]
     Active Substance: RITUXIMAB
     Dosage: 500 MG/M2
     Route: 050
     Dates: start: 201503
  10. METHOTREXATE. [Suspect]
     Active Substance: METHOTREXATE
     Indication: CENTRAL NERVOUS SYSTEM LYMPHOMA
     Dosage: 3.5 G/M2 (R?MVP 5 CYCLES)
     Route: 050
     Dates: start: 201503
  11. VINCRISTINE [Suspect]
     Active Substance: VINCRISTINE
     Indication: CENTRAL NERVOUS SYSTEM LYMPHOMA
     Dosage: 1.4 MG/M2 (R?MVP 5 CYCLES)
     Dates: start: 201503
  12. PROCARBAZINE [Suspect]
     Active Substance: PROCARBAZINE
     Dosage: UNK
     Route: 065
     Dates: start: 201503

REACTIONS (7)
  - Pneumocystis jirovecii pneumonia [Unknown]
  - Disease progression [Recovered/Resolved]
  - Meningism [Recovered/Resolved]
  - Headache [Recovered/Resolved]
  - Therapy non-responder [Unknown]
  - Uveitis [Recovered/Resolved]
  - Product use issue [Unknown]

NARRATIVE: CASE EVENT DATE: 201606
